FAERS Safety Report 15155057 (Version 1)
Quarter: 2018Q3

REPORT INFORMATION
  Report Type: Spontaneous
  Country: US (occurrence: US)
  Receive Date: 20180620
  Receipt Date: 20180620
  Transmission Date: 20181010
  Serious: Yes (Death)
  Sender: FDA-Public Use
  Company Number: None

PATIENT
  Sex: Female

DRUGS (7)
  1. METFORMIN [Concomitant]
     Active Substance: METFORMIN HYDROCHLORIDE
  2. METOPROL TAR [Concomitant]
  3. NEUPOGEN [Suspect]
     Active Substance: FILGRASTIM
     Indication: OVARIAN CANCER
     Dosage: ?          OTHER FREQUENCY:3 DAYS/3WKCYCLE;?
     Route: 058
     Dates: start: 20180224
  4. CEFDINAR [Concomitant]
  5. METHYLRED [Concomitant]
  6. ALLOPURINOL. [Concomitant]
     Active Substance: ALLOPURINOL
  7. ELIQUIS [Concomitant]
     Active Substance: APIXABAN

REACTIONS (1)
  - Death [None]
